FAERS Safety Report 20074699 (Version 7)
Quarter: 2025Q3

REPORT INFORMATION
  Report Type: Spontaneous
  Country: US (occurrence: US)
  Receive Date: 20211116
  Receipt Date: 20250909
  Transmission Date: 20251021
  Serious: Yes (Other)
  Sender: PFIZER
  Company Number: US-PFIZER INC-202100940778

PATIENT
  Age: 67 Year
  Sex: Female

DRUGS (1)
  1. XELJANZ XR [Suspect]
     Active Substance: TOFACITINIB CITRATE

REACTIONS (6)
  - Thyroid cancer [Unknown]
  - Peripheral swelling [Unknown]
  - Vomiting [Unknown]
  - Weight increased [Unknown]
  - Gait inability [Unknown]
  - Hypertension [Unknown]
